FAERS Safety Report 12833384 (Version 2)
Quarter: 2016Q4

REPORT INFORMATION
  Report Type: Report from Study
  Country: CA (occurrence: CA)
  Receive Date: 20161010
  Receipt Date: 20161207
  Transmission Date: 20170207
  Serious: Yes (Other)
  Sender: FDA-Public Use
  Company Number: CA-JNJFOC-20161003566

PATIENT
  Age: 35 Year
  Sex: Male
  Weight: 100 kg

DRUGS (3)
  1. METHOTREXATE. [Concomitant]
     Active Substance: METHOTREXATE
     Dosage: 5 TABLETS
     Route: 048
  2. REMICADE [Suspect]
     Active Substance: INFLIXIMAB
     Indication: CROHN^S DISEASE
     Dosage: THE DOSE NUMBER 6
     Route: 042
     Dates: start: 20161003
  3. REMICADE [Suspect]
     Active Substance: INFLIXIMAB
     Indication: CROHN^S DISEASE
     Route: 042
     Dates: start: 20160315

REACTIONS (4)
  - Haemorrhage [Unknown]
  - Crohn^s disease [Unknown]
  - Drug ineffective [Unknown]
  - Anal fistula [Unknown]

NARRATIVE: CASE EVENT DATE: 20160923
